FAERS Safety Report 6578616-6 (Version None)
Quarter: 2010Q1

REPORT INFORMATION
  Report Type: 
  Country: None (occurrence: None)
  Receive Date: 20100211
  Receipt Date: 20100205
  Transmission Date: 20100710
  Serious: Yes (Death)
  Sender: FDA-Public Use
  Company Number: IT-CELGENEUS-083-21880-10020589

PATIENT
  Sex: Male
  Weight: 50 kg

DRUGS (4)
  1. REVLIMID [Suspect]
     Indication: MULTIPLE MYELOMA
     Route: 048
     Dates: start: 20100127, end: 20100202
  2. DEXAMETHASONE [Suspect]
     Indication: MULTIPLE MYELOMA
     Route: 048
     Dates: start: 20100127, end: 20100202
  3. ENOXAPARIN SODIUM [Concomitant]
     Route: 058
     Dates: start: 20100127, end: 20100203
  4. CEFTRIAXONE [Concomitant]
     Route: 030
     Dates: start: 20100202, end: 20100203

REACTIONS (3)
  - FEBRILE NEUTROPENIA [None]
  - MULTI-ORGAN FAILURE [None]
  - RENAL FAILURE ACUTE [None]
